FAERS Safety Report 21295271 (Version 1)
Quarter: 2022Q3

REPORT INFORMATION
  Report Type: Report from Study
  Country: US (occurrence: US)
  Receive Date: 20220905
  Receipt Date: 20220905
  Transmission Date: 20221027
  Serious: Yes (Other)
  Sender: FDA-Public Use
  Company Number: US-ABBVIE-22K-163-4528887-00

PATIENT
  Age: 74 Year
  Sex: Female

DRUGS (2)
  1. RINVOQ [Suspect]
     Active Substance: UPADACITINIB
     Indication: Rheumatoid arthritis
     Dosage: DAILY IN THE MORNING
     Route: 048
     Dates: start: 20200111, end: 20220422
  2. RINVOQ [Suspect]
     Active Substance: UPADACITINIB
     Dosage: DAILY IN THE MORNING
     Route: 048
     Dates: start: 202206, end: 2022

REACTIONS (2)
  - Surgery [Recovering/Resolving]
  - Rheumatoid arthritis [Recovering/Resolving]

NARRATIVE: CASE EVENT DATE: 20220401
